FAERS Safety Report 6626224-0 (Version None)
Quarter: 2010Q1

REPORT INFORMATION
  Report Type: 
  Country: None (occurrence: None)
  Receive Date: 20100310
  Receipt Date: 20100303
  Transmission Date: 20100710
  Serious: Yes (Death, Hospitalization)
  Sender: FDA-Public Use
  Company Number: DE-CEPHALON-2010001363

PATIENT
  Age: 48 Year
  Sex: Female

DRUGS (2)
  1. TREANDA [Suspect]
     Indication: BREAST CANCER METASTATIC
     Dosage: SOLUTION FOR INJECTION
     Dates: start: 20010201, end: 20010801
  2. CAPECITABINE [Suspect]
     Indication: BREAST CANCER METASTATIC
     Dates: start: 20010801

REACTIONS (4)
  - ANAEMIA [None]
  - LEUKOPENIA [None]
  - PNEUMOCYSTIS JIROVECI PNEUMONIA [None]
  - RESPIRATORY FAILURE [None]
